FAERS Safety Report 7399192-4 (Version None)
Quarter: 2011Q1

REPORT INFORMATION
  Report Type: 
  Country: None (occurrence: None)
  Receive Date: 20110301
  Receipt Date: 20100507
  Transmission Date: 20110831
  Serious: Yes (Hospitalization)
  Sender: FDA-Public Use
  Company Number: RB-08782-2010

PATIENT
  Sex: Male

DRUGS (4)
  1. SUBOXONE [Suspect]
     Indication: PRODUCT USED FOR UNKNOWN INDICATION
     Dosage: (8 MG QD TRANSPLACENTAL)
     Route: 064
     Dates: start: 20090314, end: 20090429
  2. SUBUTEX [Suspect]
     Indication: PRODUCT USED FOR UNKNOWN INDICATION
     Dosage: (8 MG QD TRANSPLACENTAL), (6 MG QD TRANSPLACENTAL)
     Route: 064
     Dates: start: 20090430, end: 20090531
  3. SUBUTEX [Suspect]
     Indication: PRODUCT USED FOR UNKNOWN INDICATION
     Dosage: (8 MG QD TRANSPLACENTAL), (6 MG QD TRANSPLACENTAL)
     Route: 064
     Dates: start: 20090601, end: 20091218
  4. ZOLOFT [Concomitant]

REACTIONS (3)
  - PYREXIA [None]
  - DRUG EXPOSURE DURING PREGNANCY [None]
  - NO ADVERSE EVENT [None]
